FAERS Safety Report 7730541-0 (Version None)
Quarter: 2011Q3

REPORT INFORMATION
  Report Type: 
  Country: None (occurrence: None)
  Receive Date: 20110906
  Receipt Date: 20110830
  Transmission Date: 20111222
  Serious: Yes (Hospitalization)
  Sender: FDA-Public Use
  Company Number: GR-ELI_LILLY_AND_COMPANY-GR201108008789

PATIENT
  Sex: Male
  Weight: 85 kg

DRUGS (6)
  1. VALPROIC ACID [Concomitant]
     Indication: IMPULSIVE BEHAVIOUR
     Dosage: UNK
     Dates: start: 20090626
  2. LORAZEPAM [Concomitant]
     Indication: SLEEP DISORDER
     Dosage: UNK
     Dates: start: 20110101
  3. OLANZAPINE [Suspect]
     Indication: SCHIZOPHRENIA
     Dosage: UNK UNK, EVERY 2 WEEKS
     Route: 030
     Dates: start: 20110406
  4. OLANZAPINE [Concomitant]
     Indication: SCHIZOPHRENIA
     Dosage: UNK
     Dates: start: 20100720
  5. LEVOMEPROMAZINE [Concomitant]
     Indication: SCHIZOPHRENIA
     Dosage: UNK
     Dates: start: 20110524
  6. PREGABALIN [Concomitant]
     Indication: ANXIETY
     Dosage: UNK
     Dates: start: 20110701

REACTIONS (2)
  - AGITATION [None]
  - HOSTILITY [None]
